FAERS Safety Report 7028801-4 (Version None)
Quarter: 2010Q4

REPORT INFORMATION
  Report Type: 
  Country: None (occurrence: None)
  Receive Date: 20101005
  Receipt Date: 20100921
  Transmission Date: 20110411
  Serious: Yes (Other)
  Sender: FDA-Public Use
  Company Number: GB-PFIZER INC-2010119561

PATIENT
  Age: 71 Year
  Sex: Female

DRUGS (16)
  1. CHAMPIX [Suspect]
     Dosage: UNK
     Dates: start: 20100801
  2. METOCLOPRAMIDE [Concomitant]
     Dosage: 15 MG, SINGLE
     Dates: start: 20100907, end: 20100907
  3. PROCHLORPERAZINE [Concomitant]
     Dosage: 5 MG, SINGLE
  4. AMITRIPTYLINE [Concomitant]
  5. ACETYLSALICYLIC ACID [Concomitant]
  6. BISOPROLOL [Concomitant]
     Dosage: 5 MG, UNK
  7. EZETIMIBE [Concomitant]
     Dosage: 10 MG, UNK
  8. FLUOXETINE [Concomitant]
     Dosage: 20 MG, UNK
  9. NITROGLYCERIN [Concomitant]
  10. ISOSORBIDE MONONITRATE [Concomitant]
  11. FENTANYL [Concomitant]
     Dosage: UNK
  12. RAMIPRIL [Concomitant]
     Dosage: 5 MG, UNK
  13. SALBUTAMOL [Concomitant]
     Dosage: 100 UG, UNK
  14. SIMVASTATIN [Concomitant]
     Dosage: 40 MG, UNK
  15. TIOTROPIUM [Concomitant]
  16. TRAMADOL [Concomitant]
     Dosage: 50 MG, UNK

REACTIONS (1)
  - CHILLS [None]
